FAERS Safety Report 24406686 (Version 2)
Quarter: 2025Q1

REPORT INFORMATION
  Report Type: Spontaneous
  Country: PT (occurrence: PT)
  Receive Date: 20241007
  Receipt Date: 20250101
  Transmission Date: 20250408
  Serious: Yes (Disabling, Other)
  Sender: GLAXOSMITHKLINE
  Company Number: PT-GSK-PT2024EME120851

PATIENT

DRUGS (2)
  1. BUPROPION HYDROCHLORIDE [Interacting]
     Active Substance: BUPROPION HYDROCHLORIDE
     Indication: Depression
     Dosage: 300 MG, QD
     Route: 048
     Dates: start: 20230808, end: 20230821
  2. ANAFRANIL [Interacting]
     Active Substance: CLOMIPRAMINE HYDROCHLORIDE
     Indication: Depression
     Dosage: 75 MG, QD
     Route: 048
     Dates: end: 20230814

REACTIONS (9)
  - Dyspnoea [Recovered/Resolved]
  - Speech disorder [Recovered/Resolved]
  - Migraine [Recovered/Resolved]
  - Hypoaesthesia [Recovered/Resolved]
  - Visual impairment [Recovered/Resolved]
  - Hypoacusis [Recovered/Resolved]
  - Hallucination [Recovered/Resolved]
  - Tachycardia [Recovered/Resolved]
  - Drug interaction [Unknown]

NARRATIVE: CASE EVENT DATE: 20230809
